FAERS Safety Report 12665710 (Version 2)
Quarter: 2016Q3

REPORT INFORMATION
  Report Type: Spontaneous
  Country: US (occurrence: US)
  Receive Date: 20160818
  Receipt Date: 20160901
  Transmission Date: 20161109
  Serious: No
  Sender: FDA-Public Use
  Company Number: US-009507513-1608USA007044

PATIENT
  Age: 24 Year
  Sex: Female
  Weight: 49.43 kg

DRUGS (1)
  1. NEXPLANON [Suspect]
     Active Substance: ETONOGESTREL
     Dosage: 68 MG / EVERY 3 YEARS
     Route: 059
     Dates: end: 201608

REACTIONS (2)
  - Complication associated with device [Recovered/Resolved]
  - Metrorrhagia [Unknown]
